FAERS Safety Report 25840782 (Version 3)
Quarter: 2025Q4

REPORT INFORMATION
  Report Type: Spontaneous
  Country: AU (occurrence: AU)
  Receive Date: 20250924
  Receipt Date: 20251007
  Transmission Date: 20260118
  Serious: Yes (Hospitalization)
  Sender: MYLAN
  Company Number: AU-MYLANLABS-2025M1080758

PATIENT
  Age: 52 Year
  Sex: Male

DRUGS (9)
  1. CLOZARIL [Suspect]
     Active Substance: CLOZAPINE
     Indication: Schizophrenia
     Dosage: 400 MILLIGRAM, PM (AT NIGHT)
     Dates: start: 20210604
  2. AMLODIPINE [Concomitant]
     Active Substance: AMLODIPINE BESYLATE
     Dosage: 1 DOSAGE FORM, AM (IN THE MORNING)
  3. ASPIRIN [Concomitant]
     Active Substance: ASPIRIN
     Dosage: 1 DOSAGE FORM, AM (IN THE MORNING)
  4. ATORVASTATIN [Concomitant]
     Active Substance: ATORVASTATIN
     Dosage: 1 DOSAGE FORM, PM (AT NIGHT)
  5. PANTOPRAZOLE [Concomitant]
     Active Substance: PANTOPRAZOLE
     Dosage: 1 DOSAGE FORM, PM (AT NIGHT)
  6. TELMISARTAN [Concomitant]
     Active Substance: TELMISARTAN
     Dosage: 1 DOSAGE FORM, AM (IN THE MORNING)
  7. HORSERADISH [Concomitant]
     Active Substance: HORSERADISH
     Dosage: 2 DOSAGE FORM, PRN DAILY
  8. VITAMIN D [Concomitant]
     Active Substance: VITAMIN D NOS
     Dosage: 2 DOSAGE FORM, PRN DAILY
  9. VITAMIN C [Concomitant]
     Active Substance: ASCORBIC ACID
     Dosage: 2 DOSAGE FORM, PRN DAILY

REACTIONS (4)
  - Echocardiogram abnormal [Unknown]
  - C-reactive protein increased [Unknown]
  - Electrocardiogram abnormal [Unknown]
  - Sinus tachycardia [Unknown]

NARRATIVE: CASE EVENT DATE: 20250911
